FAERS Safety Report 16456473 (Version 11)
Quarter: 2019Q3

REPORT INFORMATION
  Report Type: Spontaneous
  Country: US (occurrence: US)
  Receive Date: 20190620
  Receipt Date: 20190924
  Transmission Date: 20191004
  Serious: Yes (Other)
  Sender: FDA-Public Use
  Company Number: US-PFIZER INC-2019260758

PATIENT
  Age: 65 Year
  Sex: Female
  Weight: 67 kg

DRUGS (3)
  1. BUPROPION. [Concomitant]
     Active Substance: BUPROPION
     Indication: DEPRESSION
     Dosage: 100 MG, 1X/DAY [AT NIGHT]
     Route: 048
     Dates: start: 201703
  2. PRISTIQ EXTENDED-RELEASE [Suspect]
     Active Substance: DESVENLAFAXINE SUCCINATE
     Dosage: 50 MG, UNK (X 14 CT BOTTLE)
  3. PRISTIQ EXTENDED-RELEASE [Suspect]
     Active Substance: DESVENLAFAXINE SUCCINATE
     Indication: DEPRESSION
     Dosage: 100 MG, 1X/DAY [EVERY NIGHT ] [BEFORE BED AT NIGHT]
     Route: 048

REACTIONS (10)
  - Thinking abnormal [Unknown]
  - Loss of personal independence in daily activities [Unknown]
  - Malaise [Unknown]
  - Suicide threat [Not Recovered/Not Resolved]
  - Drug dependence [Unknown]
  - Crying [Unknown]
  - Disturbance in attention [Unknown]
  - Suicidal ideation [Not Recovered/Not Resolved]
  - Therapeutic product effect decreased [Unknown]
  - Amnesia [Unknown]

NARRATIVE: CASE EVENT DATE: 201905
